FAERS Safety Report 5902892-3 (Version None)
Quarter: 2008Q3

REPORT INFORMATION
  Report Type: 
  Country: None (occurrence: None)
  Receive Date: 20080930
  Receipt Date: 20080922
  Transmission Date: 20090109
  Serious: Yes (Other)
  Sender: FDA-Public Use
  Company Number: PHHY2008FR22339

PATIENT
  Age: 15 Year
  Sex: Male

DRUGS (2)
  1. RITALINE LP [Suspect]
     Indication: DISTURBANCE IN ATTENTION
     Dosage: 40 MG/DAY
  2. RITALIN [Suspect]
     Indication: DISTURBANCE IN ATTENTION
     Dosage: 15 MG, BID

REACTIONS (3)
  - GOUT [None]
  - HYPERURICAEMIA [None]
  - PAIN IN EXTREMITY [None]
